FAERS Safety Report 7784254-X (Version None)
Quarter: 2011Q3

REPORT INFORMATION
  Report Type: 
  Country: None (occurrence: None)
  Receive Date: 20110928
  Receipt Date: 20110916
  Transmission Date: 20111222
  Serious: Yes (Other)
  Sender: FDA-Public Use
  Company Number: JP-BAYER-2011-087775

PATIENT
  Age: 80 Year
  Sex: Male

DRUGS (4)
  1. ROCEPHIN [Concomitant]
     Indication: PYREXIA
     Dosage: UNK
     Route: 042
  2. CIPROFLOXACIN [Suspect]
     Indication: INFECTION
     Dosage: 300 MG, BID
     Route: 042
     Dates: start: 20110810, end: 20110813
  3. ZITHROMAX [Concomitant]
     Indication: PYREXIA
     Route: 048
  4. MINOCYCLINE HCL [Concomitant]
     Indication: PYREXIA
     Dosage: UNK
     Route: 048

REACTIONS (1)
  - BLOOD CALCIUM DECREASED [None]
